FAERS Safety Report 19369896 (Version 2)
Quarter: 2022Q1

REPORT INFORMATION
  Report Type: Spontaneous
  Country: PT (occurrence: PT)
  Receive Date: 20210604
  Receipt Date: 20220324
  Transmission Date: 20220423
  Serious: Yes (Hospitalization, Other)
  Sender: FDA-Public Use
  Company Number: PT-BLUEFISH PHARMACEUTICALS AB-2021BF000600

PATIENT
  Age: 48 Year
  Sex: Male

DRUGS (6)
  1. MIRTAZAPINE [Suspect]
     Active Substance: MIRTAZAPINE
     Indication: Product used for unknown indication
     Dosage: 15 MILLIGRAM
     Route: 065
  2. PRAMIPEXOLE [Suspect]
     Active Substance: PRAMIPEXOLE
     Indication: Product used for unknown indication
     Dosage: 1.02 MILLIGRAM
     Route: 065
  3. RASAGILINE [Suspect]
     Active Substance: RASAGILINE
     Indication: Product used for unknown indication
     Dosage: 1 MILLIGRAM, ONCE A DAY
     Route: 065
  4. SERTRALINE [Suspect]
     Active Substance: SERTRALINE HYDROCHLORIDE
     Indication: Product used for unknown indication
     Dosage: 100 MILLIGRAM, ONCE A DAY
     Route: 065
  5. VENLAFAXINE [Suspect]
     Active Substance: VENLAFAXINE HYDROCHLORIDE
     Indication: Product used for unknown indication
     Dosage: 75 MILLIGRAM
     Route: 065
  6. LEVODOPA [Suspect]
     Active Substance: LEVODOPA
     Indication: Product used for unknown indication
     Dosage: 150 MILLIGRAM, ONCE A DAY
     Route: 065

REACTIONS (2)
  - Serotonin syndrome [Recovered/Resolved]
  - Duplicate therapy error [Unknown]
